FAERS Safety Report 9627835 (Version 1)
Quarter: 2013Q4

REPORT INFORMATION
  Report Type: Not Available
  Country: US (occurrence: US)
  Receive Date: 20131016
  Receipt Date: 20131016
  Transmission Date: 20140711
  Serious: No
  Sender: FDA-Public Use
  Company Number: US-LUNDBECK-DKLU1092654

PATIENT
  Sex: Male

DRUGS (3)
  1. SABRIL (FOR ORAL SOLUTION) [Suspect]
     Indication: PRODUCT USED FOR UNKNOWN INDICATION
     Dates: start: 20130501
  2. SABRIL (FOR ORAL SOLUTION) [Suspect]
     Dates: start: 20130501
  3. SABRIL (FOR ORAL SOLUTION) [Suspect]

REACTIONS (1)
  - Incorrect dose administered [Unknown]
